FAERS Safety Report 9341485 (Version 2)
Quarter: 2013Q2

REPORT INFORMATION
  Report Type: Spontaneous
  Country: AU (occurrence: AU)
  Receive Date: 20130611
  Receipt Date: 20130613
  Transmission Date: 20140414
  Serious: Yes (Hospitalization)
  Sender: FDA-Public Use
  Company Number: AU-JNJFOC-20110311749

PATIENT
  Age: 44 Year
  Sex: Male
  Weight: 134.3 kg

DRUGS (7)
  1. STELARA [Suspect]
     Indication: PSORIASIS
     Route: 058
     Dates: start: 20110106
  2. STELARA [Suspect]
     Indication: PSORIASIS
     Route: 058
     Dates: start: 20100916
  3. STELARA [Suspect]
     Indication: PSORIASIS
     Route: 058
     Dates: start: 20110623, end: 20110801
  4. STELARA [Suspect]
     Indication: PSORIASIS
     Route: 058
     Dates: start: 20110331
  5. STELARA [Suspect]
     Indication: PSORIASIS
     Route: 058
     Dates: start: 20101014
  6. EPILIM [Concomitant]
     Route: 048
     Dates: start: 1982
  7. ZYRTEC [Concomitant]
     Dosage: AS NECESSARY
     Route: 048

REACTIONS (4)
  - Urinary tract infection [Recovered/Resolved]
  - Psoriasis [Recovered/Resolved]
  - Upper respiratory tract infection [Unknown]
  - Cystitis [Recovered/Resolved]
